FAERS Safety Report 25051628 (Version 1)
Quarter: 2025Q1

REPORT INFORMATION
  Report Type: Report from Study
  Country: US (occurrence: US)
  Receive Date: 20250307
  Receipt Date: 20250307
  Transmission Date: 20250409
  Serious: Yes (Death, Other)
  Sender: GILEAD
  Company Number: US-GILEAD-2025-0703193

PATIENT
  Sex: Male

DRUGS (1)
  1. AZTREONAM LYSINE [Suspect]
     Active Substance: AZTREONAM LYSINE
     Indication: Pseudomonas infection
     Dosage: 75 MG, TID [28 DAYS ON AND 28 DAYS OFF 84 VIALS 75MG]
     Route: 055
     Dates: start: 202502

REACTIONS (2)
  - Death [Fatal]
  - Off label use [Not Recovered/Not Resolved]
